FAERS Safety Report 17067984 (Version 1)
Quarter: 2019Q4

REPORT INFORMATION
  Report Type: Spontaneous
  Country: US (occurrence: US)
  Receive Date: 20191122
  Receipt Date: 20191122
  Transmission Date: 20200122
  Serious: No
  Sender: FDA-Public Use
  Company Number: US-TARO-2019TAR00689

PATIENT
  Sex: Male

DRUGS (1)
  1. BUTENAFINE HYDROCHLORIDE [Suspect]
     Active Substance: BUTENAFINE HYDROCHLORIDE
     Route: 061

REACTIONS (2)
  - Accidental exposure to product [Recovered/Resolved]
  - Paraesthesia [Not Recovered/Not Resolved]
